FAERS Safety Report 10420271 (Version 1)
Quarter: 2014Q3

REPORT INFORMATION
  Report Type: Spontaneous
  Country: US (occurrence: None)
  Receive Date: 20140701
  Receipt Date: 20140701
  Transmission Date: 20150326
  Serious: No
  Sender: FDA-Public Use
  Company Number: 1000066710

PATIENT
  Age: 56 Year
  Sex: Female

DRUGS (5)
  1. LINZESS [Suspect]
     Active Substance: LINACLOTIDE
     Indication: CONSTIPATION
     Dosage: 1 IN 1 D
     Route: 048
     Dates: start: 2013
  2. FISH OIL [Concomitant]
     Active Substance: FISH OIL
  3. ESTROGEN (ESTRADIOL) [Concomitant]
  4. MEDROXYPROGESTERONE [Concomitant]
     Active Substance: MEDROXYPROGESTERONE
  5. CALCIUM [Concomitant]
     Active Substance: CALCIUM

REACTIONS (2)
  - Flatulence [None]
  - Abdominal distension [None]

NARRATIVE: CASE EVENT DATE: 2013
